FAERS Safety Report 8393258-8 (Version None)
Quarter: 2012Q2

REPORT INFORMATION
  Report Type: 
  Country: None (occurrence: None)
  Receive Date: 20120529
  Receipt Date: 20120523
  Transmission Date: 20120825
  Serious: Yes (Hospitalization)
  Sender: FDA-Public Use
  Company Number: NL-ROCHE-769327

PATIENT
  Sex: Male
  Weight: 61 kg

DRUGS (4)
  1. NITROGLYCERIN [Suspect]
     Indication: NON-SMALL CELL LUNG CANCER
     Dosage: FREQUENCY: D2 TILL PLUS 3,CUMMULATIVE DOSE: 250 MG, LAST COURSE : 15 MARCH 2011
     Route: 062
  2. PACLITAXEL [Suspect]
     Indication: NON-SMALL CELL LUNG CANCER
     Dosage: CUMMULATIVE DOSE: 680 MG.LAST COURSE : 13 APRIL 2011
     Route: 042
  3. AVASTIN [Suspect]
     Indication: NON-SMALL CELL LUNG CANCER
     Dosage: CUMMULATIVE DOSE: 1075 MG, LAST COURSE : 13 APRIL 2011
     Route: 042
  4. CARBOPLATIN [Suspect]
     Indication: NON-SMALL CELL LUNG CANCER
     Dosage: CUMMULATIVE DOSE: 1161 MG, LAST COURSE : 13 APRIL 2011
     Route: 042

REACTIONS (4)
  - FATIGUE [None]
  - HAEMATURIA [None]
  - PNEUMONIA [None]
  - DECREASED APPETITE [None]
